FAERS Safety Report 7796691-8 (Version None)
Quarter: 2011Q3

REPORT INFORMATION
  Report Type: 
  Country: None (occurrence: None)
  Receive Date: 20110930
  Receipt Date: 20110919
  Transmission Date: 20111222
  Serious: Yes (Hospitalization, Disabling)
  Sender: FDA-Public Use
  Company Number: 2011MA013779

PATIENT
  Sex: Female
  Weight: 61.2356 kg

DRUGS (34)
  1. CALCIUM CARBONATE [Concomitant]
  2. MIRAPEX [Concomitant]
  3. DURAGESIC-100 [Concomitant]
  4. ADRIAMYCIN PFS [Concomitant]
  5. AMBIEN [Concomitant]
  6. FOSAMAX [Concomitant]
  7. IMITREX [Concomitant]
  8. SKELAXIN [Concomitant]
  9. TAXOL [Concomitant]
  10. ZOFRAN [Concomitant]
  11. COGENTIN [Concomitant]
  12. BACLOFEN [Concomitant]
  13. HYDROCODONE BITARTRATE [Concomitant]
  14. METHOSURBANIMOL [Concomitant]
  15. TOPAMAX [Concomitant]
  16. KETOROLAC TROMETHAMINE [Concomitant]
  17. KLONOPIN [Concomitant]
  18. PROZAC [Concomitant]
  19. ASPIRIN [Concomitant]
  20. ZANAFLEX [Concomitant]
  21. ROBAXIN [Concomitant]
  22. BOTOX [Concomitant]
  23. FEMARA [Concomitant]
  24. REQUIP [Concomitant]
  25. METOCLOPRAMIDE [Suspect]
     Indication: NAUSEA
     Dosage: 10 MG;Q6HR;PO
     Route: 048
     Dates: start: 19990320
  26. TAMOXIFEN CITRATE [Concomitant]
  27. FLEXERIL [Concomitant]
  28. BENZODIAZEPINE [Concomitant]
  29. SOMA [Concomitant]
  30. PERMAX [Concomitant]
  31. CYCLOPHOSPHAMIDE [Concomitant]
  32. NEURONTIN [Concomitant]
  33. LORTAB [Concomitant]
  34. LORAZEPAM [Concomitant]

REACTIONS (41)
  - DYSTONIA [None]
  - DEPRESSION [None]
  - LIMB INJURY [None]
  - AVULSION FRACTURE [None]
  - MUSCLE TIGHTNESS [None]
  - MIGRAINE [None]
  - HYPERTONIA [None]
  - OSTEOPENIA [None]
  - TENDON DISORDER [None]
  - CHEST PAIN [None]
  - SOMNOLENCE [None]
  - ANTINUCLEAR ANTIBODY POSITIVE [None]
  - DYSKINESIA [None]
  - PARKINSONISM [None]
  - MUSCLE SPASMS [None]
  - DYSAESTHESIA [None]
  - PUBIS FRACTURE [None]
  - INSOMNIA [None]
  - ACTIVITIES OF DAILY LIVING IMPAIRED [None]
  - STIFF-MAN SYNDROME [None]
  - BALANCE DISORDER [None]
  - HYPOAESTHESIA [None]
  - FALL [None]
  - FRACTURE NONUNION [None]
  - AUTOIMMUNE THYROIDITIS [None]
  - SCOLIOSIS [None]
  - NYSTAGMUS [None]
  - DYSGRAPHIA [None]
  - MUSCLE SPASTICITY [None]
  - HYPERREFLEXIA [None]
  - COMMINUTED FRACTURE [None]
  - DRUG LEVEL INCREASED [None]
  - NEUROPATHY PERIPHERAL [None]
  - MUSCULOSKELETAL PAIN [None]
  - PAIN IN EXTREMITY [None]
  - INTERVERTEBRAL DISC PROTRUSION [None]
  - GAIT DISTURBANCE [None]
  - PELVIC FRACTURE [None]
  - SYNOVITIS [None]
  - SPINAL OSTEOARTHRITIS [None]
  - RESTLESS LEGS SYNDROME [None]
